FAERS Safety Report 17840821 (Version 1)
Quarter: 2020Q2

REPORT INFORMATION
  Report Type: Report from Study
  Country: US (occurrence: US)
  Receive Date: 20200529
  Receipt Date: 20200529
  Transmission Date: 20200714
  Serious: No
  Sender: FDA-Public Use
  Company Number: US-AGIOS-2005US01904

PATIENT

DRUGS (2)
  1. TIBSOVO [Suspect]
     Active Substance: IVOSIDENIB
     Dosage: 250 MILLIGRAM, QD
     Route: 048
  2. TIBSOVO [Suspect]
     Active Substance: IVOSIDENIB
     Indication: MYELODYSPLASTIC SYNDROME
     Dosage: 500 MILLIGRAM, QD
     Route: 048
     Dates: start: 20200420

REACTIONS (5)
  - Malaise [Unknown]
  - Headache [Recovered/Resolved]
  - Off label use [Not Recovered/Not Resolved]
  - Weight decreased [Recovered/Resolved]
  - Nausea [Recovered/Resolved]

NARRATIVE: CASE EVENT DATE: 20200421
